FAERS Safety Report 7724743-7 (Version None)
Quarter: 2011Q3

REPORT INFORMATION
  Report Type: 
  Country: None (occurrence: None)
  Receive Date: 20110901
  Receipt Date: 20110830
  Transmission Date: 20111222
  Serious: Yes (Life-Threatening, Hospitalization, Other)
  Sender: FDA-Public Use
  Company Number: BR-PFIZER INC-2011203334

PATIENT
  Age: 65 Year
  Sex: Female

DRUGS (3)
  1. ESCITALOPRAM [Concomitant]
     Dosage: 10MG
     Route: 048
     Dates: start: 20110520
  2. LYRICA [Suspect]
     Indication: GENERALISED ANXIETY DISORDER
     Dosage: 75MG PER DAY
     Route: 048
     Dates: start: 20110520, end: 20110527
  3. OLCADIL [Concomitant]
     Dosage: 2MG
     Route: 048
     Dates: start: 20110528

REACTIONS (4)
  - THROMBOSIS [None]
  - BRADYCARDIA [None]
  - RENAL FAILURE ACUTE [None]
  - PLEURAL EFFUSION [None]
